FAERS Safety Report 10898820 (Version 5)
Quarter: 2015Q1

REPORT INFORMATION
  Report Type: Spontaneous
  Country: IT (occurrence: IT)
  Receive Date: 20150309
  Receipt Date: 20150319
  Transmission Date: 20150721
  Serious: Yes (Death)
  Sender: FDA-Public Use
  Company Number: IT-009507513-1503ITA003902

PATIENT
  Age: 68 Year
  Sex: Female
  Weight: 65 kg

DRUGS (8)
  1. ENDOXAN [Concomitant]
     Active Substance: CYCLOPHOSPHAMIDE
     Indication: BREAST CANCER
     Dosage: 600 MG/M2 IN 250 ML OF SALINE SOLUTION, INTRAVENOUS, INFUSED IN 10 MINUTES
     Route: 042
     Dates: start: 20150219, end: 20150219
  2. EPIRUBICIN HYDROCHLORIDE. [Concomitant]
     Active Substance: EPIRUBICIN HYDROCHLORIDE
     Indication: BREAST CANCER
     Dosage: 152 MG, QD
     Route: 042
     Dates: start: 20150219, end: 20150219
  3. EMEND [Suspect]
     Active Substance: APREPITANT
     Indication: PROPHYLAXIS OF NAUSEA AND VOMITING
     Dosage: 80 MG, QD
     Route: 048
     Dates: start: 20150220, end: 20150221
  4. RANITIDINE [Concomitant]
     Active Substance: RANITIDINE\RANITIDINE HYDROCHLORIDE
     Indication: PREMEDICATION
     Dosage: TOTAL DAILY DOSE:50MG
     Route: 042
     Dates: start: 20150219, end: 20150219
  5. ZESTRIL [Concomitant]
     Active Substance: LISINOPRIL
     Indication: HYPERTENSION
     Dosage: 20 MG, DAILY
     Route: 048
     Dates: start: 20150219
  6. EMEND [Suspect]
     Active Substance: APREPITANT
     Indication: PROPHYLAXIS OF NAUSEA AND VOMITING
     Dosage: STRENGTH: 125 MG,DOSE: 1 CAPSULE, FREQUENCY: TOTAL
     Route: 048
     Dates: start: 20150219, end: 20150219
  7. BETAMETHASONE [Concomitant]
     Active Substance: BETAMETHASONE
     Indication: PREMEDICATION
     Dosage: 8 MG, UNK
     Route: 042
     Dates: start: 20150219, end: 20150219
  8. ALOXI [Concomitant]
     Active Substance: PALONOSETRON HYDROCHLORIDE
     Dosage: TOTAL DAILY DOSE: 0.25F/F
     Route: 042
     Dates: start: 20150219, end: 20150219

REACTIONS (6)
  - Decreased appetite [Fatal]
  - Dysphagia [Fatal]
  - Hypotonia [Fatal]
  - Dyspnoea [Fatal]
  - Disturbance in attention [Fatal]
  - Asthenia [Fatal]

NARRATIVE: CASE EVENT DATE: 20150219
